FAERS Safety Report 11259430 (Version 1)
Quarter: 2015Q3

REPORT INFORMATION
  Report Type: Spontaneous
  Country: US (occurrence: US)
  Receive Date: 20150710
  Receipt Date: 20150710
  Transmission Date: 20151125
  Serious: No
  Sender: FDA-Public Use
  Company Number: US-PURDUE-USA-2014-0117699

PATIENT
  Age: 48 Year
  Sex: Female

DRUGS (2)
  1. HYDROCODONE BITARTRATE (SIMILAR TO IND 59,175) [Concomitant]
     Active Substance: HYDROCODONE BITARTRATE
     Indication: PRODUCT USED FOR UNKNOWN INDICATION
     Dosage: 10 MG, 8 TIMES PER DAY
     Route: 048
  2. BUTRANS [Suspect]
     Active Substance: BUPRENORPHINE
     Indication: PRODUCT USED FOR UNKNOWN INDICATION
     Dosage: 10 MCG/HR, WEEKLY
     Route: 062

REACTIONS (4)
  - Wrong technique in product usage process [Unknown]
  - Blood pressure increased [Unknown]
  - Palpitations [Unknown]
  - Drug ineffective [Unknown]
